FAERS Safety Report 6091434-0 (Version None)
Quarter: 2009Q1

REPORT INFORMATION
  Report Type: 
  Country: None (occurrence: None)
  Receive Date: 20090225
  Receipt Date: 20090220
  Transmission Date: 20090719
  Serious: Yes (Life-Threatening, Hospitalization)
  Sender: FDA-Public Use
  Company Number: US-ELI_LILLY_AND_COMPANY-US200902004700

PATIENT
  Sex: Male
  Weight: 77.098 kg

DRUGS (7)
  1. ALIMTA [Suspect]
     Indication: NON-SMALL CELL LUNG CANCER
     Dosage: 940 MG, OTHER
     Route: 042
     Dates: start: 20090123
  2. CARBOPLATIN [Concomitant]
     Indication: NON-SMALL CELL LUNG CANCER
     Dosage: 468 MG, OTHER
     Route: 042
     Dates: start: 20090123
  3. AVASTIN [Concomitant]
     Indication: NON-SMALL CELL LUNG CANCER
     Dosage: 1130 MG, OTHER
     Route: 042
     Dates: start: 20090123
  4. DECADRON                                /CAN/ [Concomitant]
     Indication: PREMEDICATION
  5. FOLIC ACID [Concomitant]
  6. VITAMIN B-12 [Concomitant]
  7. ALOXI [Concomitant]
     Dosage: 0.25 MG, UNK
     Route: 042

REACTIONS (1)
  - RESPIRATORY DISTRESS [None]
